FAERS Safety Report 4390170-6 (Version None)
Quarter: 2004Q3

REPORT INFORMATION
  Report Type: 
  Country: None (occurrence: None)
  Receive Date: 20040706
  Receipt Date: 20040602
  Transmission Date: 20050211
  Serious: Yes (Life-Threatening)
  Sender: FDA-Public Use
  Company Number: JP-GLAXOSMITHKLINE-B0334737A

PATIENT
  Age: 83 Year
  Sex: Female

DRUGS (7)
  1. VALTREX [Suspect]
     Indication: HERPES ZOSTER
     Dosage: 1000MG THREE TIMES PER DAY
     Route: 048
     Dates: start: 20040527, end: 20040601
  2. DIOVAN [Suspect]
     Indication: HYPERTENSION
     Dosage: 40MG PER DAY
     Route: 048
     Dates: end: 20040601
  3. SIMVASTATIN [Concomitant]
     Dosage: 5MG PER DAY
     Route: 048
     Dates: end: 20040601
  4. NIVADIL [Concomitant]
     Indication: HYPERTENSION
     Dosage: 8MG PER DAY
     Route: 048
  5. ONEALFA [Concomitant]
     Indication: OSTEOPOROSIS
     Dosage: .5MCG PER DAY
     Route: 048
     Dates: end: 20040601
  6. KALLIKREIN [Concomitant]
     Indication: HYPERTENSION
     Dosage: 30IU PER DAY
     Route: 048
  7. CEROCRAL [Concomitant]
     Indication: DIZZINESS
     Dosage: 60MG PER DAY
     Route: 048

REACTIONS (8)
  - BLOOD POTASSIUM INCREASED [None]
  - BLOOD UREA INCREASED [None]
  - BLOOD URIC ACID INCREASED [None]
  - DIZZINESS [None]
  - GAIT DISTURBANCE [None]
  - MALAISE [None]
  - OVERDOSE [None]
  - RENAL FAILURE ACUTE [None]
